FAERS Safety Report 24276978 (Version 1)
Quarter: 2024Q3

REPORT INFORMATION
  Report Type: Spontaneous
  Country: GB (occurrence: GB)
  Receive Date: 20240903
  Receipt Date: 20240903
  Transmission Date: 20241017
  Serious: Yes (Other)
  Sender: AUROBINDO
  Company Number: GB-MHRA-MED-202408241631166090-PDJYF

PATIENT
  Age: 41 Year
  Sex: Male
  Weight: 70 kg

DRUGS (1)
  1. TAMSULOSIN [Suspect]
     Active Substance: TAMSULOSIN
     Indication: Hypertonic bladder
     Dosage: 0.4 MILLIGRAM, DAILY
     Route: 065
     Dates: start: 2024

REACTIONS (1)
  - Enuresis [Not Recovered/Not Resolved]

NARRATIVE: CASE EVENT DATE: 20240401
